FAERS Safety Report 4921550-5 (Version None)
Quarter: 2006Q1

REPORT INFORMATION
  Report Type: 
  Country: None (occurrence: None)
  Receive Date: 20060222
  Receipt Date: 20060222
  Transmission Date: 20060701
  Serious: Yes (Other)
  Sender: FDA-Public Use
  Company Number: None

PATIENT
  Age: 50 Year
  Sex: Female
  Weight: 65.318 kg

DRUGS (4)
  1. FENTANYL [Suspect]
     Indication: INTERVERTEBRAL DISC DEGENERATION
     Dosage: 100 MCG/HR Q 72 HRS
     Route: 062
     Dates: start: 20060201
  2. FENTANYL [Suspect]
     Indication: LUMBAR RADICULOPATHY
     Dosage: 100 MCG/HR Q 72 HRS
     Route: 062
     Dates: start: 20060201
  3. SOMA [Concomitant]
  4. HYDROCODONE [Concomitant]

REACTIONS (4)
  - APPLICATION SITE ERYTHEMA [None]
  - APPLICATION SITE REACTION [None]
  - APPLICATION SITE SWELLING [None]
  - PHARMACEUTICAL PRODUCT COMPLAINT [None]
